FAERS Safety Report 4484256-5 (Version None)
Quarter: 2004Q4

REPORT INFORMATION
  Report Type: 
  Country: None (occurrence: None)
  Receive Date: 20041025
  Receipt Date: 20041019
  Transmission Date: 20050328
  Serious: Yes (Other)
  Sender: FDA-Public Use
  Company Number: GB-GLAXOSMITHKLINE-B0348662A

PATIENT
  Sex: Male

DRUGS (1)
  1. SEROXAT [Suspect]
     Dates: end: 20041016

REACTIONS (5)
  - DIZZINESS [None]
  - DRUG WITHDRAWAL SYNDROME [None]
  - HEADACHE [None]
  - MENTAL IMPAIRMENT [None]
  - SHOCK [None]
